FAERS Safety Report 8826338 (Version 1)
Quarter: 2012Q4

REPORT INFORMATION
  Report Type: 
  Country: US (occurrence: US)
  Receive Date: 20121008
  Receipt Date: 20121008
  Transmission Date: 20130627
  Serious: Yes (Other)
  Sender: FDA-Public Use
  Company Number: US-JNJFOC-20121000085

PATIENT
  Sex: Female
  Weight: 97.52 kg

DRUGS (1)
  1. ORTHO TRI-CYCLEN LO [Suspect]
     Indication: CONTRACEPTION
     Route: 048
     Dates: start: 201107

REACTIONS (13)
  - Migraine [Unknown]
  - Weight increased [Not Recovered/Not Resolved]
  - Hyperaesthesia [Not Recovered/Not Resolved]
  - Stress [Unknown]
  - Vaginal haemorrhage [Recovered/Resolved]
  - Pregnancy on oral contraceptive [Not Recovered/Not Resolved]
  - Menstruation delayed [Recovered/Resolved]
  - Abdominal distension [Not Recovered/Not Resolved]
  - Polyuria [Not Recovered/Not Resolved]
  - Uterine spasm [Not Recovered/Not Resolved]
  - Breast pain [Not Recovered/Not Resolved]
  - Hunger [Not Recovered/Not Resolved]
  - Irritability [Unknown]
